FAERS Safety Report 9239870 (Version 4)
Quarter: 2013Q3

REPORT INFORMATION
  Report Type: Spontaneous
  Country: FR (occurrence: FR)
  Receive Date: 20130418
  Receipt Date: 20130812
  Transmission Date: 20140515
  Serious: Yes (Life-Threatening, Hospitalization, Other)
  Sender: FDA-Public Use
  Company Number: FR-PFIZER INC-2013120089

PATIENT
  Age: 67 Year
  Sex: Male

DRUGS (21)
  1. LYRICA [Suspect]
     Dosage: 25 MG, 2X/DAY
     Route: 048
     Dates: start: 201010, end: 201302
  2. LYRICA [Suspect]
     Dosage: 60 MG, 3X/DAY
     Route: 048
     Dates: start: 20130304
  3. LYRICA [Suspect]
     Dosage: 75 MG, 3X/DAY
     Route: 048
     Dates: end: 20130317
  4. XATRAL - SLOW RELEASE [Suspect]
     Dosage: 10 MG, 1X/DAY
     Route: 048
     Dates: start: 20130313, end: 20130316
  5. TAVANIC [Concomitant]
     Indication: ARTHRITIS BACTERIAL
     Dosage: 250 MG, 2X/DAY
     Route: 048
     Dates: start: 20130104, end: 20130308
  6. ORBENINE [Concomitant]
     Indication: ARTHRITIS BACTERIAL
     Dosage: 2 G, 3X/DAY
     Route: 042
     Dates: start: 20130104, end: 20130308
  7. TIENAM [Concomitant]
     Dosage: 500 MG, 4X/DAY
     Route: 042
     Dates: start: 20130314, end: 20130317
  8. AMIKLIN [Concomitant]
     Dosage: 1500 MG/DAY
     Route: 042
     Dates: start: 20130208, end: 20130314
  9. CYMBALTA [Concomitant]
     Dosage: 60 MG, 1X/DAY
     Route: 048
     Dates: start: 20130311, end: 20130317
  10. CEFOTAXIME SODIUM [Concomitant]
     Dosage: 1 G, 3X/DAY
     Route: 042
     Dates: start: 20130308, end: 20130314
  11. FLAGYL [Concomitant]
     Dosage: 500 MG, 3X/DAY
     Route: 042
     Dates: start: 20130312, end: 20130314
  12. COAPROVEL [Concomitant]
  13. TRIATEC [Concomitant]
  14. LASILIX [Concomitant]
  15. ZANIDIP [Concomitant]
  16. HYPERIUM [Concomitant]
  17. DIFFU K [Concomitant]
  18. MOPRAL [Concomitant]
  19. ALDACTONE [Concomitant]
     Dosage: UNK
     Dates: start: 201301
  20. IMOVANE [Concomitant]
     Dosage: UNK
     Dates: start: 201301
  21. CORDARONE [Concomitant]

REACTIONS (3)
  - Cardio-respiratory arrest [Recovered/Resolved]
  - Electrocardiogram QT prolonged [Recovered/Resolved]
  - Arthritis bacterial [Unknown]
